FAERS Safety Report 26207383 (Version 1)
Quarter: 2025Q4

REPORT INFORMATION
  Report Type: Spontaneous
  Country: US (occurrence: None)
  Receive Date: 20251229
  Receipt Date: 20251229
  Transmission Date: 20260118
  Serious: Yes (Hospitalization, Other)
  Sender: APOTEX
  Company Number: US-APOTEX-2025AP035015

PATIENT
  Age: 67 Year
  Sex: Male

DRUGS (1)
  1. APIXABAN [Suspect]
     Active Substance: APIXABAN
     Indication: Pulmonary embolism
     Dosage: UNK
     Route: 065

REACTIONS (2)
  - Anticoagulant-related nephropathy [Not Recovered/Not Resolved]
  - Acute kidney injury [Not Recovered/Not Resolved]
